FAERS Safety Report 11096813 (Version 1)
Quarter: 2015Q2

REPORT INFORMATION
  Report Type: Report from Study
  Country: US (occurrence: US)
  Receive Date: 20150507
  Receipt Date: 20150507
  Transmission Date: 20150821
  Serious: Yes (Other)
  Sender: FDA-Public Use
  Company Number: PHEH2015US002801

PATIENT
  Age: 46 Year
  Sex: Female

DRUGS (13)
  1. EXTAVIA [Suspect]
     Active Substance: INTERFERON BETA-1B
     Dosage: 0.187 MG, QOD (0.75 ML), WEEKS 5 TO 6
     Route: 058
  2. EXTAVIA [Suspect]
     Active Substance: INTERFERON BETA-1B
     Dosage: 0.125 MG, QOD (0.5ML)
     Route: 058
  3. EXTAVIA [Suspect]
     Active Substance: INTERFERON BETA-1B
     Dosage: UNK
     Route: 058
     Dates: start: 20150311
  4. EXTAVIA [Suspect]
     Active Substance: INTERFERON BETA-1B
     Dosage: 0.25 MG, QOD
     Route: 058
     Dates: start: 201504, end: 201504
  5. EXTAVIA [Suspect]
     Active Substance: INTERFERON BETA-1B
     Dosage: 0.062 MG, QOD (0.25 ML), WEEKS 1 TO 2
     Route: 058
     Dates: start: 20150203
  6. EXTAVIA [Suspect]
     Active Substance: INTERFERON BETA-1B
     Dosage: 0.187 MG, QOD (0.75 ML)
     Route: 058
  7. ATENOLOL. [Concomitant]
     Active Substance: ATENOLOL
     Indication: PRODUCT USED FOR UNKNOWN INDICATION
     Dosage: 50 OT, UNK
     Route: 065
     Dates: start: 2014
  8. EXTAVIA [Suspect]
     Active Substance: INTERFERON BETA-1B
     Indication: MULTIPLE SCLEROSIS
     Dosage: 0.25 MG, QOD
     Route: 058
     Dates: start: 201501
  9. EXTAVIA [Suspect]
     Active Substance: INTERFERON BETA-1B
     Dosage: 0.125 MG, (0.5ML), WEEKS 3 TO 4
     Route: 058
     Dates: start: 20150203
  10. TRAZODONE [Concomitant]
     Active Substance: TRAZODONE HYDROCHLORIDE
     Indication: PRODUCT USED FOR UNKNOWN INDICATION
     Dosage: 50 OT, QHS (PRN)
     Route: 065
     Dates: start: 2014
  11. EXTAVIA [Suspect]
     Active Substance: INTERFERON BETA-1B
     Dosage: 0.25 MG, QOD (1 ML, WEEKS 7 AND ABOVE)
     Route: 058
  12. EXTAVIA [Suspect]
     Active Substance: INTERFERON BETA-1B
     Dosage: UNK
     Route: 058
     Dates: start: 20150321
  13. LEXAPRO [Concomitant]
     Active Substance: ESCITALOPRAM OXALATE
     Indication: PRODUCT USED FOR UNKNOWN INDICATION
     Dosage: 10 OT, UNK
     Route: 065

REACTIONS (8)
  - Vomiting [Not Recovered/Not Resolved]
  - Depression [Not Recovered/Not Resolved]
  - Nausea [Not Recovered/Not Resolved]
  - Insomnia [Unknown]
  - Somnolence [Unknown]
  - Injection site pain [Recovered/Resolved]
  - Injection site bruising [Unknown]
  - Memory impairment [Unknown]

NARRATIVE: CASE EVENT DATE: 201501
